FAERS Safety Report 6325987-1 (Version None)
Quarter: 2009Q3

REPORT INFORMATION
  Report Type: 
  Country: None (occurrence: None)
  Receive Date: 20090824
  Receipt Date: 20090818
  Transmission Date: 20100115
  Serious: Yes (Death, Hospitalization, Other)
  Sender: FDA-Public Use
  Company Number: IN-ELI_LILLY_AND_COMPANY-IN200908003675

PATIENT
  Age: 59 Year
  Sex: Male

DRUGS (2)
  1. XIGRIS [Suspect]
     Indication: TYPHOID FEVER
     Dosage: UNK, UNKNOWN
     Route: 042
     Dates: start: 20090814, end: 20090815
  2. XIGRIS [Suspect]
     Dosage: UNK, UNKNOWN
     Route: 042
     Dates: start: 20090816, end: 20090801

REACTIONS (4)
  - LOSS OF CONSCIOUSNESS [None]
  - MULTI-ORGAN DISORDER [None]
  - RENAL FAILURE [None]
  - TYPHOID FEVER [None]
